FAERS Safety Report 9437770 (Version 1)
Quarter: 2013Q3

REPORT INFORMATION
  Report Type: Spontaneous
  Country: US (occurrence: US)
  Receive Date: 20130802
  Receipt Date: 20130802
  Transmission Date: 20140515
  Serious: Yes (Other)
  Sender: FDA-Public Use
  Company Number: US-BRISTOL-MYERS SQUIBB COMPANY-17423989

PATIENT
  Age: 78 Year
  Sex: Male
  Weight: 76.2 kg

DRUGS (10)
  1. COUMADIN [Suspect]
     Dosage: 23FEB12-15MAR12:1MG?16MAR12-28MAR12:1MG?16MAR12-28MAR12:0.5MG
     Route: 048
  2. XANAX [Concomitant]
     Route: 048
     Dates: start: 201010
  3. VITAMIN B12 [Concomitant]
     Route: 048
     Dates: start: 2009
  4. VITAMIN C [Concomitant]
     Route: 048
     Dates: start: 2009
  5. CENTRUM SILVER [Concomitant]
     Dosage: TABS
     Route: 048
     Dates: start: 2009
  6. VARDENAFIL [Concomitant]
     Indication: ERECTILE DYSFUNCTION
     Route: 048
     Dates: start: 201102
  7. INDERAL [Concomitant]
     Indication: TREMOR
     Route: 048
     Dates: start: 20111215
  8. OXYCODONE [Concomitant]
     Indication: PROCEDURAL PAIN
     Route: 048
     Dates: start: 20120223, end: 20120320
  9. TRAMADOL [Concomitant]
     Indication: PROCEDURAL PAIN
     Route: 048
     Dates: start: 20120321, end: 20120405
  10. VALIUM [Concomitant]
     Indication: PROPHYLAXIS
     Route: 048
     Dates: start: 20120327, end: 20120327

REACTIONS (1)
  - Cerebral microhaemorrhage [Not Recovered/Not Resolved]
